FAERS Safety Report 14284228 (Version 1)
Quarter: 2017Q4

REPORT INFORMATION
  Report Type: Spontaneous
  Country: NL (occurrence: NL)
  Receive Date: 20171214
  Receipt Date: 20171214
  Transmission Date: 20180321
  Serious: Yes (Hospitalization)
  Sender: FDA-Public Use
  Company Number: NL-ASTRAZENECA-2017SF25511

PATIENT
  Sex: Male
  Weight: 97 kg

DRUGS (14)
  1. NOVORAPID [Concomitant]
     Active Substance: INSULIN ASPART
  2. SOTALOL. [Concomitant]
     Active Substance: SOTALOL
  3. GEMFIBROZIL. [Concomitant]
     Active Substance: GEMFIBROZIL
  4. FERROFUMARAAT [Concomitant]
  5. METFORMIN [Concomitant]
     Active Substance: METFORMIN HYDROCHLORIDE
  6. TOUJEO [Concomitant]
     Active Substance: INSULIN GLARGINE
  7. APIXABAN [Concomitant]
     Active Substance: APIXABAN
  8. BURINEX [Concomitant]
     Active Substance: BUMETANIDE
  9. GLICLAZIDE [Concomitant]
     Active Substance: GLICLAZIDE
  10. ATORVASTATIN [Concomitant]
     Active Substance: ATORVASTATIN
  11. RAMIPRIL. [Concomitant]
     Active Substance: RAMIPRIL
  12. FORXIGA [Suspect]
     Active Substance: DAPAGLIFLOZIN
     Indication: TYPE 2 DIABETES MELLITUS
     Route: 048
     Dates: start: 201703, end: 201711
  13. OMEPRAZOL [Concomitant]
     Active Substance: OMEPRAZOLE
  14. GLICLAZIDE [Concomitant]
     Active Substance: GLICLAZIDE

REACTIONS (2)
  - Candida infection [Recovering/Resolving]
  - Cystitis [Recovering/Resolving]
